FAERS Safety Report 12091226 (Version 2)
Quarter: 2016Q3

REPORT INFORMATION
  Report Type: Spontaneous
  Country: FR (occurrence: FR)
  Receive Date: 20160218
  Receipt Date: 20160720
  Transmission Date: 20161109
  Serious: No
  Sender: FDA-Public Use
  Company Number: FR-MYLANLABS-2016M1005735

PATIENT

DRUGS (4)
  1. BACLOFEN. [Suspect]
     Active Substance: BACLOFEN
     Indication: ALCOHOLISM
     Dosage: 15 MG/DAY; DOSE PROGRESSIVELY INCREASED TO 150 MG/DAY OVER 5 WEEKS
     Route: 065
  2. BACLOFEN. [Suspect]
     Active Substance: BACLOFEN
     Dosage: 120 MG/DAY
     Route: 065
  3. BACLOFEN. [Suspect]
     Active Substance: BACLOFEN
     Dosage: 150 MG/DAY
     Route: 065
  4. BACLOFEN. [Suspect]
     Active Substance: BACLOFEN
     Dosage: 150 MG/DAY
     Route: 065

REACTIONS (4)
  - Off label use [Unknown]
  - Fatigue [Recovering/Resolving]
  - Overdose [Unknown]
  - Dizziness [Recovering/Resolving]
